FAERS Safety Report 5373587-2 (Version None)
Quarter: 2007Q2

REPORT INFORMATION
  Report Type: 
  Country: None (occurrence: None)
  Receive Date: 20070525
  Receipt Date: 20060210
  Transmission Date: 20071010
  Serious: Yes (Other)
  Sender: FDA-Public Use
  Company Number: 250791

PATIENT

DRUGS (1)
  1. NOVOSEVEN [Suspect]
     Indication: FACTOR XI DEFICIENCY
     Dosage: INTRAVENOUS
     Route: 042

REACTIONS (1)
  - EMBOLISM [None]
